FAERS Safety Report 7909612-1 (Version None)
Quarter: 2011Q4

REPORT INFORMATION
  Report Type: 
  Country: None (occurrence: None)
  Receive Date: 20111111
  Receipt Date: 20111102
  Transmission Date: 20120403
  Serious: Yes (Hospitalization)
  Sender: FDA-Public Use
  Company Number: US-GLAXOSMITHKLINE-A0871291A

PATIENT
  Age: 56 Year
  Sex: Female

DRUGS (2)
  1. AVANDIA [Suspect]
     Indication: TYPE 2 DIABETES MELLITUS
     Dosage: 8MG PER DAY
     Route: 048
     Dates: end: 20090101
  2. CELEBREX [Concomitant]

REACTIONS (3)
  - IMMOBILE [None]
  - MYOCARDIAL INFARCTION [None]
  - THROMBOSIS [None]
